FAERS Safety Report 11631746 (Version 3)
Quarter: 2016Q1

REPORT INFORMATION
  Report Type: Spontaneous
  Country: US (occurrence: US)
  Receive Date: 20151015
  Receipt Date: 20160202
  Transmission Date: 20160525
  Serious: Yes (Hospitalization, Other)
  Sender: FDA-Public Use
  Company Number: US-PFIZER INC-2015288985

PATIENT
  Age: 57 Year
  Sex: Female
  Weight: 79 kg

DRUGS (4)
  1. IBRANCE [Suspect]
     Active Substance: PALBOCICLIB
     Indication: BREAST CANCER
     Dosage: 125 MG, CYCLIC (DAY 1 TO DAY 21 EVERY 28 DAYS)
     Route: 048
     Dates: start: 20150730
  2. IBRANCE [Suspect]
     Active Substance: PALBOCICLIB
     Dosage: UNK
  3. IBRANCE [Suspect]
     Active Substance: PALBOCICLIB
     Dosage: 100 MG, CYCLIC(DAY 1-21 Q 28 DAYS)
     Route: 048
     Dates: start: 20150730
  4. IBRANCE [Suspect]
     Active Substance: PALBOCICLIB
     Dosage: 100 MG, CYCLIC (DAY 1 TO DAY 21 EVERY 28DAYS)
     Route: 048
     Dates: start: 20150827

REACTIONS (7)
  - Vomiting [Unknown]
  - Pneumonia [Unknown]
  - Breast cancer [Unknown]
  - Dehydration [Unknown]
  - Nausea [Unknown]
  - Dyspnoea [Unknown]
  - Disease progression [Unknown]

NARRATIVE: CASE EVENT DATE: 2015
